FAERS Safety Report 18070196 (Version 5)
Quarter: 2024Q1

REPORT INFORMATION
  Report Type: Spontaneous
  Country: CA (occurrence: CA)
  Receive Date: 20200727
  Receipt Date: 20240119
  Transmission Date: 20240410
  Serious: Yes (Life-Threatening, Hospitalization, Disabling, Other)
  Sender: FDA-Public Use
  Company Number: None

PATIENT
  Age: 3 Year
  Sex: Female

DRUGS (51)
  1. HYDROXYCHLOROQUINE [Suspect]
     Active Substance: HYDROXYCHLOROQUINE
     Indication: Juvenile idiopathic arthritis
     Dosage: 1 EVERY 1 DAYS
     Route: 048
  2. METHOTREXATE [Suspect]
     Active Substance: METHOTREXATE
     Indication: Juvenile idiopathic arthritis
     Dosage: 1 EVERY 1 WEEKS
     Route: 058
  3. NAPROXEN [Suspect]
     Active Substance: NAPROXEN
     Indication: Juvenile idiopathic arthritis
  4. ACTEMRA [Suspect]
     Active Substance: TOCILIZUMAB
     Indication: Juvenile idiopathic arthritis
     Dosage: 1 EVERY 1 WEEKS
     Route: 042
  5. ANAKINRA [Suspect]
     Active Substance: ANAKINRA
     Indication: Juvenile idiopathic arthritis
     Dosage: 1 EVERY 1 DAYS
     Route: 058
  6. ENBREL [Suspect]
     Active Substance: ETANERCEPT
     Indication: Juvenile idiopathic arthritis
     Dosage: 1 EVERY 1 WEEKS
     Route: 058
  7. HUMIRA [Suspect]
     Active Substance: ADALIMUMAB
     Indication: Juvenile idiopathic arthritis
     Dosage: SOLUTION SUBCUTANEOUS
     Route: 058
  8. INFLIXIMAB [Suspect]
     Active Substance: INFLIXIMAB
     Indication: Juvenile idiopathic arthritis
     Route: 042
  9. ABATACEPT [Suspect]
     Active Substance: ABATACEPT
     Indication: Juvenile idiopathic arthritis
     Dosage: 1 EVERY 1 MONTHS
     Route: 042
  10. PREDNISONE [Suspect]
     Active Substance: PREDNISONE
     Indication: Juvenile idiopathic arthritis
     Dosage: 2 EVERY 1 DAYS
     Route: 048
  11. SULFASALAZINE [Suspect]
     Active Substance: SULFASALAZINE
     Indication: Juvenile idiopathic arthritis
     Dosage: 1 EVERY 1 DAYS
     Route: 048
  12. TRIAMCINOLONE [Suspect]
     Active Substance: TRIAMCINOLONE
     Indication: Juvenile idiopathic arthritis
  13. ADALIMUMAB [Suspect]
     Active Substance: ADALIMUMAB\ISOPROPYL ALCOHOL
     Indication: Juvenile idiopathic arthritis
     Route: 058
  14. HUMAN IMMUNOGLOBULIN G [Suspect]
     Active Substance: HUMAN IMMUNOGLOBULIN G
     Indication: Juvenile idiopathic arthritis
     Route: 042
  15. TRIAMCINOLONE HEXACETONIDE [Concomitant]
     Active Substance: TRIAMCINOLONE HEXACETONIDE
     Indication: Product used for unknown indication
  16. FOLIC ACID [Suspect]
     Active Substance: FOLIC ACID
     Indication: Product used for unknown indication
  17. GAMASTAN [Suspect]
     Active Substance: HUMAN IMMUNOGLOBULIN G
     Indication: Juvenile idiopathic arthritis
     Dosage: LIQUID INTRAMUSCULAR
  18. TOFACITINIB [Suspect]
     Active Substance: TOFACITINIB
     Indication: Rheumatoid arthritis
     Dosage: 1 EVERY 1 DAYS, TABLET EXTENDED RELEASE
  19. RITUXIMAB [Suspect]
     Active Substance: RITUXIMAB
     Indication: Juvenile idiopathic arthritis
     Dosage: 1 EVERY 1 WEEKS
     Route: 058
  20. FOLIC ACID [Concomitant]
     Active Substance: FOLIC ACID
     Indication: Product used for unknown indication
  21. RITUXIMAB [Suspect]
     Active Substance: RITUXIMAB
     Indication: Juvenile idiopathic arthritis
     Dosage: 2 EVERY 1 WEEKS
     Route: 058
  22. INFLIXIMAB [Suspect]
     Active Substance: INFLIXIMAB
     Indication: Juvenile idiopathic arthritis
     Dosage: 1 EVERY 1 WEEKS
     Route: 042
  23. METHOTREXATE [Suspect]
     Active Substance: METHOTREXATE
     Indication: Rheumatoid arthritis
     Route: 058
  24. METHOTREXATE [Suspect]
     Active Substance: METHOTREXATE
     Indication: Juvenile idiopathic arthritis
     Route: 037
  25. METHOTREXATE [Suspect]
     Active Substance: METHOTREXATE
     Indication: Juvenile idiopathic arthritis
     Dosage: 1 EVERY 1 WEEKS
     Route: 058
  26. ABATACEPT [Suspect]
     Active Substance: ABATACEPT
     Indication: Juvenile idiopathic arthritis
     Dosage: 1 EVERY 1 MONTHS
     Route: 042
  27. ABATACEPT [Suspect]
     Active Substance: ABATACEPT
     Indication: Juvenile idiopathic arthritis
     Route: 042
  28. TRIAMCINOLONE [Suspect]
     Active Substance: TRIAMCINOLONE
     Indication: Juvenile idiopathic arthritis
     Dosage: SUSPENSION INTRA- ARTICULAR
     Route: 014
  29. ACTEMRA [Suspect]
     Active Substance: TOCILIZUMAB
     Indication: Juvenile idiopathic arthritis
     Route: 042
  30. ACTEMRA [Suspect]
     Active Substance: TOCILIZUMAB
     Indication: Juvenile idiopathic arthritis
     Dosage: 1 EVERY 2 WEEKS
     Route: 042
  31. ACTEMRA [Suspect]
     Active Substance: TOCILIZUMAB
     Indication: Juvenile idiopathic arthritis
     Dosage: 1 EVERY 1 DAYS
  32. ANAKINRA [Suspect]
     Active Substance: ANAKINRA
     Indication: Juvenile idiopathic arthritis
     Dosage: 1 EVERY 1 WEEKS
  33. ANAKINRA [Suspect]
     Active Substance: ANAKINRA
     Indication: Juvenile idiopathic arthritis
     Dosage: 1 EVERY 1 DAYS
     Route: 058
  34. ANAKINRA [Suspect]
     Active Substance: ANAKINRA
     Indication: Juvenile idiopathic arthritis
     Dosage: 1 EVERY 1 DAYS
     Route: 058
  35. ANAKINRA [Suspect]
     Active Substance: ANAKINRA
     Indication: Juvenile idiopathic arthritis
     Dosage: 1 EVERY 1 DAYS
     Route: 058
  36. PREDNISONE [Suspect]
     Active Substance: PREDNISONE
     Indication: Juvenile idiopathic arthritis
     Dosage: 1 EVERY 1 DAYS
     Route: 048
  37. ENBREL [Suspect]
     Active Substance: ETANERCEPT
     Indication: Juvenile idiopathic arthritis
     Dosage: 1 EVERY 1 WEEKS
     Route: 058
  38. ENBREL [Suspect]
     Active Substance: ETANERCEPT
     Indication: Juvenile idiopathic arthritis
     Dosage: 1 EVERY 1 WEEKS
     Route: 058
  39. ENBREL [Suspect]
     Active Substance: ETANERCEPT
     Indication: Juvenile idiopathic arthritis
     Route: 058
  40. ENBREL [Suspect]
     Active Substance: ETANERCEPT
     Indication: Juvenile idiopathic arthritis
  41. ENBREL [Suspect]
     Active Substance: ETANERCEPT
     Indication: Juvenile idiopathic arthritis
     Dosage: 2 EVERY 1 WEEKS
     Route: 058
  42. PREDNISONE [Suspect]
     Active Substance: PREDNISONE
     Indication: Juvenile idiopathic arthritis
     Dosage: 2 EVERY 1 DAYS
     Route: 048
  43. METHOTREXATE [Suspect]
     Active Substance: METHOTREXATE
     Indication: Juvenile idiopathic arthritis
     Dosage: 12 EVERY 2 WEEKS
     Route: 058
  44. ENBREL [Suspect]
     Active Substance: ETANERCEPT
     Indication: Juvenile idiopathic arthritis
     Dosage: 1 EVERY 1 WEEKS
     Route: 058
  45. ACTEMRA [Suspect]
     Active Substance: TOCILIZUMAB
     Indication: Juvenile idiopathic arthritis
     Dosage: 1 EVERY 2 DAYS, 2 EVERY 1 WEEKS, 1 EVERY 1 DAYS, 2 EVERY 1 DAYS, 1 EVERY 1 WEEKS
     Route: 042
  46. PREDNISONE [Suspect]
     Active Substance: PREDNISONE
     Indication: Juvenile idiopathic arthritis
     Route: 048
  47. ENBREL [Suspect]
     Active Substance: ETANERCEPT
     Indication: Juvenile idiopathic arthritis
     Dosage: 1 EVERY 1 WEEKS
     Route: 058
  48. HYDROXYCHLOROQUINE [Suspect]
     Active Substance: HYDROXYCHLOROQUINE
     Indication: Juvenile idiopathic arthritis
     Dosage: 1 EVERY 24 HOURS
     Route: 048
  49. HUMAN IMMUNOGLOBULIN G [Suspect]
     Active Substance: HUMAN IMMUNOGLOBULIN G
     Indication: Juvenile idiopathic arthritis
     Route: 042
  50. INFLIXIMAB [Suspect]
     Active Substance: INFLIXIMAB
     Indication: Juvenile idiopathic arthritis
     Route: 042
  51. PREDNISONE [Suspect]
     Active Substance: PREDNISONE
     Indication: Juvenile idiopathic arthritis
     Route: 048

REACTIONS (52)
  - Red blood cell sedimentation rate increased [Not Recovered/Not Resolved]
  - Therapeutic product effect decreased [Unknown]
  - Short stature [Unknown]
  - Septic shock [Not Recovered/Not Resolved]
  - Nausea [Not Recovered/Not Resolved]
  - Mobility decreased [Not Recovered/Not Resolved]
  - Juvenile idiopathic arthritis [Not Recovered/Not Resolved]
  - Human antichimeric antibody positive [Not Recovered/Not Resolved]
  - Drug specific antibody [Not Recovered/Not Resolved]
  - Drug intolerance [Unknown]
  - Drug ineffective [Unknown]
  - Synovitis [Not Recovered/Not Resolved]
  - Vomiting [Not Recovered/Not Resolved]
  - Product use issue [Unknown]
  - Joint effusion [Unknown]
  - Joint injury [Unknown]
  - Liver function test abnormal [Not Recovered/Not Resolved]
  - Loss of consciousness [Not Recovered/Not Resolved]
  - Pleural effusion [Not Recovered/Not Resolved]
  - Prescribed underdose [Unknown]
  - Pyrexia [Not Recovered/Not Resolved]
  - Quality of life decreased [Unknown]
  - Red blood cell sedimentation rate abnormal [Unknown]
  - Contraindicated product administered [Unknown]
  - Intentional product use issue [Unknown]
  - Loss of personal independence in daily activities [Not Recovered/Not Resolved]
  - Arthralgia [Unknown]
  - Bone density increased [Unknown]
  - Wheelchair user [Not Recovered/Not Resolved]
  - Antibody test positive [Not Recovered/Not Resolved]
  - C-reactive protein abnormal [Unknown]
  - Gastroenteritis viral [Not Recovered/Not Resolved]
  - Immunodeficiency [Not Recovered/Not Resolved]
  - Hypotension [Not Recovered/Not Resolved]
  - Hypokalaemia [Not Recovered/Not Resolved]
  - Hypocalcaemia [Not Recovered/Not Resolved]
  - Condition aggravated [Not Recovered/Not Resolved]
  - C-reactive protein increased [Not Recovered/Not Resolved]
  - Body height below normal [Not Recovered/Not Resolved]
  - Bone density decreased [Not Recovered/Not Resolved]
  - Arthropathy [Not Recovered/Not Resolved]
  - Arthritis [Not Recovered/Not Resolved]
  - Adrenal insufficiency [Not Recovered/Not Resolved]
  - Psoriasis [Not Recovered/Not Resolved]
  - Polyarthritis [Not Recovered/Not Resolved]
  - Obesity [Not Recovered/Not Resolved]
  - Dizziness [Not Recovered/Not Resolved]
  - Diarrhoea [Not Recovered/Not Resolved]
  - Joint destruction [Unknown]
  - Rheumatoid arthritis [Unknown]
  - Therapy non-responder [Unknown]
  - Underdose [Unknown]
